FAERS Safety Report 10571315 (Version 1)
Quarter: 2014Q4

REPORT INFORMATION
  Report Type: Spontaneous
  Country: US (occurrence: US)
  Receive Date: 20141107
  Receipt Date: 20141107
  Transmission Date: 20150529
  Serious: Yes (Hospitalization, Other)
  Sender: FDA-Public Use
  Company Number: US-GLAXOSMITHKLINE-US2014GSK018250

PATIENT
  Age: 13 Year
  Sex: Female

DRUGS (1)
  1. BUPROPION [Suspect]
     Active Substance: BUPROPION

REACTIONS (11)
  - Areflexia [Unknown]
  - Pupil fixed [Unknown]
  - Intentional overdose [Recovered/Resolved]
  - Status epilepticus [Unknown]
  - Partial seizures [Unknown]
  - Clonus [Unknown]
  - Coma [Unknown]
  - Brain death [Unknown]
  - Paralysis flaccid [Unknown]
  - Sinus tachycardia [Unknown]
  - Pneumonia aspiration [Unknown]
